FAERS Safety Report 4993800-0 (Version None)
Quarter: 2006Q2

REPORT INFORMATION
  Report Type: 
  Country: None (occurrence: None)
  Receive Date: 20060505
  Receipt Date: 20050902
  Transmission Date: 20061013
  Serious: Yes (Hospitalization, Disabling)
  Sender: FDA-Public Use
  Company Number: US-MERCK-0509USA00582

PATIENT
  Sex: Male
  Weight: 120 kg

DRUGS (17)
  1. VIOXX [Suspect]
     Indication: ARTHRITIS
     Route: 048
     Dates: start: 20011129, end: 20030131
  2. VIOXX [Suspect]
     Route: 048
     Dates: start: 20030301, end: 20041001
  3. AMARYL [Concomitant]
     Indication: DIABETES MELLITUS
     Route: 065
  4. AVANDIA [Concomitant]
     Indication: DIABETES MELLITUS
     Route: 065
  5. ZESTRIL [Concomitant]
     Indication: HYPERTENSION
     Route: 065
     Dates: start: 19970701, end: 20020701
  6. NICODERM [Concomitant]
     Indication: EX-SMOKER
     Route: 065
  7. LISINOPRIL [Concomitant]
     Indication: HYPERTENSION
     Route: 065
     Dates: start: 20020717
  8. ULTRACET [Concomitant]
     Indication: PAIN
     Route: 065
     Dates: start: 20030211, end: 20030318
  9. TRAMADOL HYDROCHLORIDE [Concomitant]
     Indication: PAIN
     Route: 065
     Dates: start: 20030505, end: 20031003
  10. ACETAMINOPHEN [Concomitant]
     Indication: PAIN
     Route: 065
     Dates: start: 20030728, end: 20030805
  11. ACETAMINOPHEN AND HYDROCODONE BITARTRATE [Concomitant]
     Indication: PAIN
     Route: 065
     Dates: start: 20030705
  12. CARISOPRODOL [Concomitant]
     Indication: PAIN
     Route: 065
     Dates: start: 20031006, end: 20031106
  13. MOBIC [Concomitant]
     Indication: ARTHRALGIA
     Route: 065
     Dates: start: 20001024, end: 20011213
  14. NEURONTIN [Concomitant]
     Indication: ARTHRALGIA
     Route: 065
     Dates: start: 20030716
  15. SKELAXIN [Concomitant]
     Indication: MUSCLE RELAXANT THERAPY
     Route: 065
     Dates: start: 20000706, end: 20000819
  16. SKELAXIN [Concomitant]
     Route: 065
     Dates: start: 20010324, end: 20010505
  17. TIZANIDINE HYDROCHLORIDE [Concomitant]
     Indication: MUSCLE RELAXANT THERAPY
     Route: 065
     Dates: start: 20041209, end: 20050209

REACTIONS (8)
  - ANXIETY [None]
  - BACK PAIN [None]
  - BACTERIAL INFECTION [None]
  - DEEP VEIN THROMBOSIS [None]
  - DIABETIC NEUROPATHY [None]
  - INFECTION [None]
  - INSOMNIA [None]
  - PAIN IN EXTREMITY [None]
